FAERS Safety Report 9667902 (Version 3)
Quarter: 2013Q4

REPORT INFORMATION
  Report Type: Spontaneous
  Country: BR (occurrence: BR)
  Receive Date: 20131104
  Receipt Date: 20131125
  Transmission Date: 20140711
  Serious: Yes (Other)
  Sender: FDA-Public Use
  Company Number: BR-AMGEN-BRASP2012019110

PATIENT
  Age: 46 Year
  Sex: Female
  Weight: 75 kg

DRUGS (9)
  1. ENBREL [Suspect]
     Indication: RHEUMATOID ARTHRITIS
     Dosage: 50 MG, QWK
     Route: 058
     Dates: start: 201106, end: 201308
  2. ENBREL [Suspect]
     Dosage: 50 MG, ONCE WEEKLY
     Route: 058
     Dates: start: 201110
  3. ANGIOPRIL                          /00574902/ [Concomitant]
     Dosage: 50 MG, QD
  4. SERTRALINE [Concomitant]
     Dosage: 50 MG, 2X/DAY
     Route: 048
  5. ANGIPRESS                          /00422901/ [Concomitant]
     Dosage: 50 MG, 2X/DAY
     Route: 048
  6. HYABAK [Concomitant]
     Dosage: 0.15 % BID, ,1 DROP IN EACH EYE, 2X/DAY
     Route: 047
  7. ANGIPRESS CD [Concomitant]
     Dosage: UNK, STRENGTH 50MG/12.5MG
  8. PRESS PLUS [Concomitant]
     Dosage: UNK, STRENGTH 5MG/10MG
  9. OFTAN                              /00905501/ [Concomitant]
     Dosage: 1 DROP TWICE DAILY EACH EYE

REACTIONS (6)
  - Hepatitis toxic [Unknown]
  - Gamma-glutamyltransferase increased [Unknown]
  - Hepatic enzyme abnormal [Unknown]
  - Alanine aminotransferase increased [Unknown]
  - Aspartate aminotransferase increased [Unknown]
  - Injection site pain [Unknown]
